FAERS Safety Report 11183747 (Version 2)
Quarter: 2015Q3

REPORT INFORMATION
  Report Type: Spontaneous
  Country: US (occurrence: None)
  Receive Date: 20150610
  Receipt Date: 20150716
  Transmission Date: 20151125
  Serious: Yes (Disabling, Other)
  Sender: FDA-Public Use
  Company Number: DEP_02928_2015

PATIENT
  Sex: Female
  Weight: 86.18 kg

DRUGS (14)
  1. FENTANYL. [Concomitant]
     Active Substance: FENTANYL
  2. MECLIZINE [Concomitant]
     Active Substance: MECLIZINE\MECLIZINE HYDROCHLORIDE
  3. XOPENEX [Concomitant]
     Active Substance: LEVALBUTEROL HYDROCHLORIDE
  4. CYMBALTA [Concomitant]
     Active Substance: DULOXETINE HYDROCHLORIDE
  5. WELLBUTRIN [Concomitant]
     Active Substance: BUPROPION HYDROCHLORIDE
  6. DOXYCYCLINE. [Concomitant]
     Active Substance: DOXYCYCLINE
  7. THYROXINE [Concomitant]
     Active Substance: LEVOTHYROXINE
  8. LOPRESSOR [Concomitant]
     Active Substance: METOPROLOL TARTRATE
  9. GRALISE [Suspect]
     Active Substance: GABAPENTIN
     Indication: PAIN
     Dosage: TITRATED UP TO 1200 MG ONCE DAILY
     Route: 048
     Dates: start: 201504
  10. ADVAIR HFA [Concomitant]
     Active Substance: FLUTICASONE PROPIONATE\SALMETEROL XINAFOATE
  11. GRALISE [Suspect]
     Active Substance: GABAPENTIN
     Indication: OFF LABEL USE
     Dosage: TITRATED UP TO 1200 MG ONCE DAILY
     Route: 048
     Dates: start: 201504
  12. SINGULAIR [Concomitant]
     Active Substance: MONTELUKAST SODIUM
  13. DILTIAZEM [Concomitant]
     Active Substance: DILTIAZEM
  14. ASPIRIN. [Concomitant]
     Active Substance: ASPIRIN

REACTIONS (5)
  - Psychomotor skills impaired [None]
  - Fall [None]
  - Condition aggravated [None]
  - Confusional state [None]
  - Movement disorder [None]

NARRATIVE: CASE EVENT DATE: 2015
